FAERS Safety Report 10597337 (Version 2)
Quarter: 2014Q4

REPORT INFORMATION
  Report Type: Spontaneous
  Country: PL (occurrence: PL)
  Receive Date: 20141121
  Receipt Date: 20141121
  Transmission Date: 20150529
  Serious: Yes (Death, Hospitalization)
  Sender: FDA-Public Use
  Company Number: PL-RANBAXY-2014R1-85387

PATIENT
  Age: 34 Year
  Sex: Female

DRUGS (1)
  1. METFORMIN [Suspect]
     Active Substance: METFORMIN HYDROCHLORIDE
     Indication: PRODUCT USED FOR UNKNOWN INDICATION
     Dosage: UNK
     Route: 065

REACTIONS (7)
  - Suicide attempt [Unknown]
  - Respiratory failure [Unknown]
  - Seizure [Unknown]
  - Balance disorder [Unknown]
  - Poisoning [Unknown]
  - Metabolic acidosis [Unknown]
  - Death [Fatal]
